FAERS Safety Report 8805136 (Version 1)
Quarter: 2012Q4

REPORT INFORMATION
  Report Type: 
  Country: US (occurrence: US)
  Receive Date: 20120924
  Receipt Date: 20120924
  Transmission Date: 20130627
  Serious: No
  Sender: FDA-Public Use
  Company Number: US-ALLERGAN-1209077US

PATIENT
  Age: 82 Year
  Sex: Female

DRUGS (2)
  1. LUMIGAN� 0.01% [Suspect]
     Indication: DRUG USE FOR UNKNOWN INDICATION
     Dosage: 2 Gtt, qhs
     Route: 047
     Dates: start: 20120618, end: 20120620
  2. BION TEARS                         /00134201/ [Concomitant]
     Indication: EYE LUBRICATION THERAPY

REACTIONS (4)
  - Eye pain [Recovering/Resolving]
  - Ocular hyperaemia [Recovering/Resolving]
  - Eye irritation [Recovering/Resolving]
  - Eye pruritus [Recovering/Resolving]
